FAERS Safety Report 9239252 (Version 3)
Quarter: 2013Q4

REPORT INFORMATION
  Report Type: Spontaneous
  Country: US (occurrence: US)
  Receive Date: 20130417
  Receipt Date: 20131009
  Transmission Date: 20140711
  Serious: Yes (Other)
  Sender: FDA-Public Use
  Company Number: US-RB-052227-13

PATIENT
  Age: 0 None
  Sex: Female

DRUGS (7)
  1. SUBUTEX [Suspect]
     Indication: DRUG DEPENDENCE
     Route: 064
     Dates: start: 201109, end: 20120413
  2. GENERIC BUPRENORPHINE [Suspect]
     Indication: DRUG DEPENDENCE
     Dosage: DOSE THAT THE NEONATE WAS EXPOSED TO VIA BREAST MILK WAS UNKNOWN
     Route: 063
     Dates: start: 20120413, end: 201210
  3. NICOTINE [Suspect]
     Indication: PRODUCT USED FOR UNKNOWN INDICATION
     Dosage: THE NEONATE^S MOTHER WAS SMOKING 10 CIGARETTES A DAY
     Route: 064
     Dates: start: 20110801, end: 20120413
  4. NICOTINE [Suspect]
     Dosage: MOTHER SMOKED 10 CIGARETTES PER DAY
     Route: 063
     Dates: start: 20120413, end: 201210
  5. HEROIN [Suspect]
     Indication: SUBSTANCE ABUSE
     Dosage: DOSE THAT THE NEONATE WAS EXPOSED WAS UNKNOWN
     Route: 064
     Dates: start: 20110801, end: 20110919
  6. OXYCODONE [Suspect]
     Indication: SUBSTANCE ABUSE
     Dosage: DOSE THAT THE NEONATE WAS EXPOSED WAS UNKNOWN
     Route: 064
     Dates: start: 20110801, end: 20110919
  7. MARIJUANA [Suspect]
     Indication: SUBSTANCE ABUSE
     Dosage: DOSE THAT THE NEONATE WAS EXPOSED WAS UNKNOWN
     Route: 064
     Dates: start: 20110801, end: 20110919

REACTIONS (3)
  - Foetal exposure during pregnancy [Recovered/Resolved]
  - Premature baby [Recovered/Resolved]
  - Exposure during breast feeding [Recovered/Resolved]
